FAERS Safety Report 14955556 (Version 1)
Quarter: 2018Q2

REPORT INFORMATION
  Report Type: Spontaneous
  Country: FR (occurrence: FR)
  Receive Date: 20180531
  Receipt Date: 20180531
  Transmission Date: 20180711
  Serious: Yes (Hospitalization)
  Sender: FDA-Public Use
  Company Number: FR-TEVA-2018-FR-899563

PATIENT
  Age: 61 Year
  Sex: Female

DRUGS (4)
  1. PARACETAMOL [Suspect]
     Active Substance: ACETAMINOPHEN
     Route: 048
     Dates: start: 20180105
  2. ZOPICLONE [Suspect]
     Active Substance: ZOPICLONE
     Route: 048
     Dates: start: 20180105
  3. ALCOOL [Suspect]
     Active Substance: ALCOHOL
     Dosage: 1 GLASS PER DAY
     Route: 048
  4. CITALOPRAM (CHLORHYDRATE DE) [Suspect]
     Active Substance: CITALOPRAM HYDROCHLORIDE
     Route: 048
     Dates: start: 20180105

REACTIONS (5)
  - Drug dependence [Not Recovered/Not Resolved]
  - Drug abuser [Recovered/Resolved]
  - Alcohol abuse [Not Recovered/Not Resolved]
  - Altered state of consciousness [Recovered/Resolved]
  - Intentional product misuse [Recovered/Resolved]

NARRATIVE: CASE EVENT DATE: 20180105
